FAERS Safety Report 19231306 (Version 2)
Quarter: 2021Q2

REPORT INFORMATION
  Report Type: Spontaneous
  Country: BR (occurrence: BR)
  Receive Date: 20210507
  Receipt Date: 20210621
  Transmission Date: 20210717
  Serious: Yes (Other)
  Sender: FDA-Public Use
  Company Number: BR-PFIZER INC-2021387412

PATIENT
  Sex: Female

DRUGS (2)
  1. SAYANA [Suspect]
     Active Substance: MEDROXYPROGESTERONE
     Indication: CONTRACEPTION
  2. SAYANA [Suspect]
     Active Substance: MEDROXYPROGESTERONE
     Indication: HAEMORRHAGE
     Dosage: UNK

REACTIONS (8)
  - Gait disturbance [Unknown]
  - Injection site swelling [Unknown]
  - Off label use [Unknown]
  - Injection site necrosis [Unknown]
  - Injection site pain [Unknown]
  - Injection site haematoma [Unknown]
  - Drug effective for unapproved indication [Unknown]
  - Injection site warmth [Unknown]
